FAERS Safety Report 8280881-4 (Version None)
Quarter: 2012Q2

REPORT INFORMATION
  Report Type: 
  Country: None (occurrence: None)
  Receive Date: 20120412
  Receipt Date: 20120403
  Transmission Date: 20120825
  Serious: Yes (Hospitalization)
  Sender: FDA-Public Use
  Company Number: IT-BAXTER-2012BAX002155

PATIENT
  Sex: Male

DRUGS (8)
  1. CYCLOPHOSPHAMIDE [Suspect]
     Indication: B-CELL LYMPHOMA
     Route: 042
     Dates: start: 20120209, end: 20120313
  2. MABTHERA [Suspect]
     Indication: B-CELL LYMPHOMA
     Route: 042
     Dates: start: 20120216, end: 20120312
  3. PREDNISONE TAB [Concomitant]
     Route: 048
     Dates: start: 20120210, end: 20120215
  4. VINCRISTINE [Suspect]
     Indication: B-CELL LYMPHOMA
     Route: 042
     Dates: start: 20120209, end: 20120313
  5. ALLOPURINOL [Concomitant]
     Route: 048
     Dates: start: 20120209, end: 20120223
  6. LEVOFLOXACIN [Concomitant]
     Route: 048
     Dates: start: 20120213, end: 20120223
  7. BACTRIM [Concomitant]
     Route: 048
     Dates: start: 20120209, end: 20120215
  8. SPORANOX [Concomitant]
     Route: 048
     Dates: start: 20120209, end: 20120219

REACTIONS (1)
  - FEBRILE NEUTROPENIA [None]
